FAERS Safety Report 21083522 (Version 2)
Quarter: 2022Q3

REPORT INFORMATION
  Report Type: Spontaneous
  Country: US (occurrence: US)
  Receive Date: 20220714
  Receipt Date: 20220729
  Transmission Date: 20221027
  Serious: Yes (Hospitalization)
  Sender: FDA-Public Use
  Company Number: US-TEVA-2022-US-2053934

PATIENT
  Age: 32 Year
  Sex: Female

DRUGS (23)
  1. DEXAMETHASONE [Suspect]
     Active Substance: DEXAMETHASONE
     Indication: B precursor type acute leukaemia
     Dosage: PART OF HYPER-CVAD REGIMEN
     Route: 065
     Dates: start: 2019
  2. DEXAMETHASONE [Suspect]
     Active Substance: DEXAMETHASONE
     Dosage: PART OF HYPER-CVAD REGIMEN
     Route: 065
     Dates: start: 202102
  3. DOXORUBICIN HYDROCHLORIDE [Suspect]
     Active Substance: DOXORUBICIN HYDROCHLORIDE
     Indication: B precursor type acute leukaemia
     Dosage: PART OF HYPER-CVAD REGIMEN
     Route: 065
     Dates: start: 2019
  4. DOXORUBICIN HYDROCHLORIDE [Suspect]
     Active Substance: DOXORUBICIN HYDROCHLORIDE
     Dosage: PART OF HYPER-CVAD REGIMEN
     Route: 065
     Dates: start: 202102
  5. ETOPOSIDE [Suspect]
     Active Substance: ETOPOSIDE
     Indication: B precursor type acute leukaemia
     Route: 065
     Dates: start: 202101
  6. IFOSFAMIDE [Suspect]
     Active Substance: IFOSFAMIDE
     Indication: B precursor type acute leukaemia
     Route: 065
     Dates: start: 202101
  7. METHOTREXATE [Suspect]
     Active Substance: METHOTREXATE
     Indication: B precursor type acute leukaemia
     Dosage: PART OF POMP REGIMEN
     Route: 065
     Dates: start: 201908
  8. METHOTREXATE [Suspect]
     Active Substance: METHOTREXATE
     Dosage: HIGH DOSE METHOTREXATE
     Route: 065
     Dates: start: 2020
  9. METHOTREXATE [Suspect]
     Active Substance: METHOTREXATE
     Route: 037
     Dates: start: 2019
  10. METHOTREXATE [Suspect]
     Active Substance: METHOTREXATE
     Dosage: EVERY 2 WEEKS FOR FIVE CYCLES
     Route: 037
     Dates: start: 2020
  11. METHYLPREDNISOLONE [Suspect]
     Active Substance: METHYLPREDNISOLONE
     Indication: Immunosuppressant drug therapy
     Route: 065
     Dates: start: 202101
  12. MITOXANTRONE [Suspect]
     Active Substance: MITOXANTRONE HYDROCHLORIDE
     Indication: B precursor type acute leukaemia
     Route: 065
     Dates: start: 202101
  13. PREDNISONE [Suspect]
     Active Substance: PREDNISONE
     Indication: B precursor type acute leukaemia
     Dosage: PART OF POMP REGIMEN
     Route: 065
     Dates: start: 201908
  14. VINCRISTINE SULFATE [Suspect]
     Active Substance: VINCRISTINE SULFATE
     Indication: B precursor type acute leukaemia
     Dosage: PART OF HYPER-CVAD REGIMEN
     Route: 065
     Dates: start: 2019
  15. VINCRISTINE SULFATE [Suspect]
     Active Substance: VINCRISTINE SULFATE
     Dosage: PART OF POMP REGIMEN
     Route: 065
     Dates: start: 201908
  16. VINCRISTINE SULFATE [Suspect]
     Active Substance: VINCRISTINE SULFATE
     Dosage: PART OF HYPER-CVAD REGIMEN
     Route: 065
     Dates: start: 202102
  17. CYCLOPHOSPHAMIDE [Suspect]
     Active Substance: CYCLOPHOSPHAMIDE
     Indication: B precursor type acute leukaemia
     Dosage: PART OF HYPER-CVAD REGIMEN
     Route: 065
     Dates: start: 2019
  18. CYCLOPHOSPHAMIDE [Suspect]
     Active Substance: CYCLOPHOSPHAMIDE
     Dosage: PART OF HYPER-CVAD REGIMEN
     Route: 065
     Dates: start: 202102
  19. DASATINIB [Suspect]
     Active Substance: DASATINIB
     Indication: B precursor type acute leukaemia
     Route: 065
     Dates: start: 2019
  20. MERCAPTOPURINE [Suspect]
     Active Substance: MERCAPTOPURINE
     Indication: B precursor type acute leukaemia
     Dosage: PART OF POMP REGIMEN
     Route: 065
     Dates: start: 201908
  21. CYTARABINE [Suspect]
     Active Substance: CYTARABINE
     Indication: B precursor type acute leukaemia
     Dosage: EVERY 2 WEEKS FOR FIVE CYCLES
     Route: 065
     Dates: start: 2020
  22. HYDROCORTISONE [Suspect]
     Active Substance: HYDROCORTISONE
     Indication: B precursor type acute leukaemia
     Dosage: EVERY 2 WEEKS FOR FIVE CYCLES
     Route: 065
     Dates: start: 2020
  23. PERCOCET [Suspect]
     Active Substance: ACETAMINOPHEN\OXYCODONE HYDROCHLORIDE
     Indication: Product used for unknown indication
     Route: 065

REACTIONS (5)
  - Strongyloidiasis [Recovered/Resolved]
  - Pulmonary oedema [Unknown]
  - Pericardial effusion [Unknown]
  - Acute respiratory failure [Unknown]
  - Rash [Unknown]
